FAERS Safety Report 6557596-3 (Version None)
Quarter: 2010Q1

REPORT INFORMATION
  Report Type: 
  Country: None (occurrence: None)
  Receive Date: 20100128
  Receipt Date: 20100128
  Transmission Date: 20100710
  Serious: Yes (Life-Threatening, Other)
  Sender: FDA-Public Use
  Company Number: None

PATIENT
  Sex: Male
  Weight: 108.2 kg

DRUGS (2)
  1. JANUVIA [Suspect]
     Indication: BLOOD GLUCOSE INCREASED
     Dosage: 100MG PER DAY 1 PER DAY MONTH
     Dates: start: 20091228
  2. JANUVIA [Suspect]
     Indication: DIABETES MELLITUS
     Dosage: 100MG PER DAY 1 PER DAY MONTH
     Dates: start: 20091228

REACTIONS (4)
  - EYE SWELLING [None]
  - IMPAIRED DRIVING ABILITY [None]
  - PRURITUS [None]
  - SKIN BURNING SENSATION [None]
